FAERS Safety Report 22653144 (Version 1)
Quarter: 2023Q2

REPORT INFORMATION
  Report Type: Spontaneous
  Country: AT (occurrence: AT)
  Receive Date: 20230629
  Receipt Date: 20230629
  Transmission Date: 20230721
  Serious: Yes (Other)
  Sender: FDA-Public Use
  Company Number: AT-ROCHE-3314114

PATIENT
  Age: 60 Year
  Sex: Male

DRUGS (25)
  1. DOXORUBICIN HYDROCHLORIDE [Suspect]
     Active Substance: DOXORUBICIN HYDROCHLORIDE
     Indication: Diffuse large B-cell lymphoma
     Dosage: IN 250 ML NACL 0.9 PERCENTAGE 250 ML POLYPROPYLENE POUCH, FRESENIUS
     Route: 065
     Dates: start: 20230103, end: 20230108
  2. DOXORUBICIN HYDROCHLORIDE [Suspect]
     Active Substance: DOXORUBICIN HYDROCHLORIDE
     Dosage: 50 ML IN 250 ML NACL 0.9 PERCENTAGE 250 ML POLYPROPYLENE POUCH, FRESENIUS.
     Route: 065
     Dates: start: 20230104
  3. DOXORUBICIN HYDROCHLORIDE [Suspect]
     Active Substance: DOXORUBICIN HYDROCHLORIDE
     Route: 065
     Dates: start: 20230214, end: 20230219
  4. DOXORUBICIN HYDROCHLORIDE [Suspect]
     Active Substance: DOXORUBICIN HYDROCHLORIDE
     Route: 065
     Dates: start: 20230124, end: 20230129
  5. DOXORUBICIN HYDROCHLORIDE [Suspect]
     Active Substance: DOXORUBICIN HYDROCHLORIDE
     Route: 065
     Dates: start: 20221212, end: 20221217
  6. PREDNISONE [Suspect]
     Active Substance: PREDNISONE
     Indication: Diffuse large B-cell lymphoma
     Route: 065
     Dates: start: 20230124, end: 20230129
  7. PREDNISONE [Suspect]
     Active Substance: PREDNISONE
     Dates: start: 20230214, end: 20230219
  8. PREDNISONE [Suspect]
     Active Substance: PREDNISONE
     Dates: start: 20221212, end: 20221217
  9. PREDNISONE [Suspect]
     Active Substance: PREDNISONE
     Dates: start: 20230103, end: 20230108
  10. VINCRISTINE SULFATE [Suspect]
     Active Substance: VINCRISTINE SULFATE
     Indication: Diffuse large B-cell lymphoma
     Route: 065
     Dates: start: 20221212, end: 20221217
  11. POLIVY [Suspect]
     Active Substance: POLATUZUMAB VEDOTIN-PIIQ
     Indication: Diffuse large B-cell lymphoma
     Dosage: POLIVY [POLATUZUMAB VEDOTIN]
     Route: 065
     Dates: start: 20230103
  12. POLIVY [Suspect]
     Active Substance: POLATUZUMAB VEDOTIN-PIIQ
     Dosage: IN 100 ML NACL 0.9 PERCENTAGE (2-8CENTIGRADE) 100 ML POLYPROPYLENE POUCH, FRESENIUS IV.
     Route: 065
     Dates: start: 20230103, end: 20230108
  13. CYCLOPHOSPHAMIDE [Suspect]
     Active Substance: CYCLOPHOSPHAMIDE
     Indication: Diffuse large B-cell lymphoma
     Dosage: ENDOXAN [CYCLOPHOSPHAMIDE]
     Route: 065
     Dates: start: 20230214, end: 20230219
  14. CYCLOPHOSPHAMIDE [Suspect]
     Active Substance: CYCLOPHOSPHAMIDE
     Dosage: IN 500 ML NACL 0.9 PERCENATAGE 500 ML POLYPROPYLENE POUCH, FRESENIUS, IV.
     Route: 065
     Dates: start: 20230103, end: 20230108
  15. CYCLOPHOSPHAMIDE [Suspect]
     Active Substance: CYCLOPHOSPHAMIDE
     Route: 065
     Dates: start: 20230124, end: 20230129
  16. CYCLOPHOSPHAMIDE [Suspect]
     Active Substance: CYCLOPHOSPHAMIDE
     Route: 065
     Dates: start: 20221212, end: 20221217
  17. RITUXIMAB [Suspect]
     Active Substance: RITUXIMAB
     Indication: Diffuse large B-cell lymphoma
     Route: 065
     Dates: start: 20230214, end: 20230219
  18. RITUXIMAB [Suspect]
     Active Substance: RITUXIMAB
     Dosage: IN 500 ML NACL 0.9 PERCENATAGE 500 ML POLYPROPYLENE POUCH, FRESENIUS.
     Route: 065
     Dates: start: 20230103, end: 20230108
  19. RITUXIMAB [Suspect]
     Active Substance: RITUXIMAB
     Route: 065
     Dates: start: 20230124, end: 20230129
  20. RITUXIMAB [Suspect]
     Active Substance: RITUXIMAB
     Route: 065
     Dates: start: 20221212, end: 20221217
  21. ACETAMINOPHEN [Concomitant]
     Active Substance: ACETAMINOPHEN
     Indication: Product used for unknown indication
     Route: 065
     Dates: start: 20230103, end: 20230108
  22. DIPHENHYDRAMINE HYDROCHLORIDE [Concomitant]
     Active Substance: DIPHENHYDRAMINE HYDROCHLORIDE
     Indication: Product used for unknown indication
     Dosage: IN 20 ML NACL 0.9 PERCENTAGE.
     Route: 065
  23. MESNA [Concomitant]
     Active Substance: MESNA
     Indication: Product used for unknown indication
     Route: 065
     Dates: start: 20230104
  24. MESNA [Concomitant]
     Active Substance: MESNA
     Route: 065
     Dates: start: 20230103, end: 20230108
  25. ONDANSETRON [Concomitant]
     Active Substance: ONDANSETRON
     Indication: Product used for unknown indication
     Dosage: IN 100 ML NACL 0.9 PERCENTAGE IN POLYETHYLENE BOTTLE.
     Route: 065
     Dates: start: 20230103, end: 20230108

REACTIONS (1)
  - Central nervous system lymphoma [Unknown]
